FAERS Safety Report 9536912 (Version 2)
Quarter: 2013Q3

REPORT INFORMATION
  Report Type: Report from Study
  Country: US (occurrence: US)
  Receive Date: 20130919
  Receipt Date: 20130919
  Transmission Date: 20140515
  Serious: No
  Sender: FDA-Public Use
  Company Number: US-ABBVIE-13P-163-1139133-00

PATIENT
  Sex: Female
  Weight: 68.1 kg

DRUGS (5)
  1. HUMIRA [Suspect]
     Indication: ANKYLOSING SPONDYLITIS
     Dates: start: 20130823
  2. SYNTHROID [Concomitant]
     Indication: BASEDOW^S DISEASE
  3. ATIVAN [Concomitant]
     Indication: PAIN
  4. POTASSIUM CITRATE [Concomitant]
     Indication: NEPHROLITHIASIS
  5. TENORMIN [Concomitant]
     Indication: SUPRAVENTRICULAR TACHYCARDIA

REACTIONS (2)
  - Arthralgia [Not Recovered/Not Resolved]
  - Carpal tunnel syndrome [Not Recovered/Not Resolved]
